FAERS Safety Report 5084727-7 (Version None)
Quarter: 2006Q3

REPORT INFORMATION
  Report Type: 
  Country: None (occurrence: None)
  Receive Date: 20060815
  Receipt Date: 20060714
  Transmission Date: 20061208
  Serious: Yes (Other)
  Sender: FDA-Public Use
  Company Number: 805#1#2006-00086

PATIENT
  Age: 82 Year
  Sex: Female

DRUGS (12)
  1. ALPROSTADIL [Suspect]
     Indication: ARTERIOSCLEROSIS OBLITERANS
     Dosage: 40 MCG (40 MCG 1 IN 1 DAY (S)) INTRAVENOUS DRIP
     Route: 041
     Dates: start: 20060627, end: 20060627
  2. ALPROSTADIL [Suspect]
     Indication: ARTERIOSCLEROSIS OBLITERANS
     Dosage: 40 MCG (40 MCG 1 IN 1 DAY (S)) INTRAVENOUS DRIP
     Route: 041
     Dates: start: 20060629, end: 20060629
  3. ALPROSTADIL [Suspect]
     Indication: ARTERIOSCLEROSIS OBLITERANS
     Dosage: 40 MCG (40 MCG 1 IN 1 DAY (S)) INTRAVENOUS DRIP
     Route: 041
     Dates: start: 20060704, end: 20060711
  4. RALOXIFENE HCL [Concomitant]
  5. ALFACALCIDOL (ALFACALCIDOL) [Concomitant]
  6. ETODOLAC [Concomitant]
  7. MISOPROSTOL [Concomitant]
  8. MEROPENEM TRIHYDRATE (MEROPENEM) [Concomitant]
  9. AMINOPHYLLINE (AMINOPHYLLINE) [Concomitant]
  10. METOCLOPRAMIDE HYDROCHLORIDE (METOCLOPRAMIDE) [Concomitant]
  11. THIAMINE DISULFIDE / PYRIDOXINE HYDROCHLORIDE / HYDROXOCOBALAM IN ACET [Concomitant]
  12. NEUROTROPIN (ORGAN LYSATE, STANDARDIZED) [Concomitant]

REACTIONS (6)
  - DEHYDRATION [None]
  - DEPRESSED LEVEL OF CONSCIOUSNESS [None]
  - HYPONATRAEMIA [None]
  - PNEUMONIA ASPIRATION [None]
  - PYREXIA [None]
  - SEPSIS [None]
